FAERS Safety Report 16649458 (Version 1)
Quarter: 2019Q3

REPORT INFORMATION
  Report Type: Spontaneous
  Country: US (occurrence: US)
  Receive Date: 20190730
  Receipt Date: 20190730
  Transmission Date: 20191004
  Serious: Yes (Hospitalization)
  Sender: FDA-Public Use
  Company Number: US-SHIRE-US201924010

PATIENT
  Age: 55 Year

DRUGS (1)
  1. GATTEX [Suspect]
     Active Substance: TEDUGLUTIDE\WATER
     Indication: PRODUCT USED FOR UNKNOWN INDICATION
     Dosage: 0.40 UNK UNIT, 1X/DAY:QD
     Route: 058
     Dates: start: 20190722

REACTIONS (2)
  - Hospitalisation [Recovering/Resolving]
  - Mutism [Unknown]

NARRATIVE: CASE EVENT DATE: 20190722
